FAERS Safety Report 13213150 (Version 2)
Quarter: 2017Q1

REPORT INFORMATION
  Report Type: Spontaneous
  Country: US (occurrence: US)
  Receive Date: 20170210
  Receipt Date: 20170303
  Transmission Date: 20170428
  Serious: Yes (Hospitalization, Other)
  Sender: FDA-Public Use
  Company Number: US-BRISTOL-MYERS SQUIBB COMPANY-BMS-2017-009276

PATIENT
  Age: 80 Year
  Sex: Male

DRUGS (2)
  1. OPDIVO [Suspect]
     Active Substance: NIVOLUMAB
     Indication: NON-SMALL CELL LUNG CANCER
     Dosage: UNK
     Route: 042
  2. ACYCLOVIR                          /00587301/ [Concomitant]
     Active Substance: ACYCLOVIR
     Indication: PRODUCT USED FOR UNKNOWN INDICATION
     Route: 065

REACTIONS (9)
  - Confusional state [Unknown]
  - Lumbar puncture [Unknown]
  - Urinary tract infection [Unknown]
  - Colitis ulcerative [Recovering/Resolving]
  - Encephalitis [Unknown]
  - Hepatitis [Unknown]
  - Delusion [Unknown]
  - Influenza [Unknown]
  - Hallucination [Unknown]

NARRATIVE: CASE EVENT DATE: 201701
